FAERS Safety Report 19430391 (Version 1)
Quarter: 2021Q2

REPORT INFORMATION
  Report Type: Report from Study
  Country: US (occurrence: US)
  Receive Date: 20210618
  Receipt Date: 20210618
  Transmission Date: 20210717
  Serious: Yes (Other)
  Sender: FDA-Public Use
  Company Number: US-SUN PHARMACEUTICAL INDUSTRIES LTD-2021R1-300365

PATIENT
  Age: 29 Year

DRUGS (1)
  1. FINASTERIDE. [Suspect]
     Active Substance: FINASTERIDE
     Indication: PRODUCT USED FOR UNKNOWN INDICATION
     Dosage: 1 MILLIGRAM, DAILY
     Route: 065

REACTIONS (8)
  - Depression [Unknown]
  - Insomnia [Unknown]
  - Weight decreased [Unknown]
  - Erectile dysfunction [Unknown]
  - Testicular pain [Unknown]
  - Anxiety [Unknown]
  - Panic attack [Unknown]
  - Psychiatric symptom [Unknown]
